FAERS Safety Report 5307117-8 (Version None)
Quarter: 2007Q2

REPORT INFORMATION
  Report Type: 
  Country: None (occurrence: None)
  Receive Date: 20070423
  Receipt Date: 20070423
  Transmission Date: 20071010
  Serious: No
  Sender: FDA-Public Use
  Company Number: None

PATIENT
  Age: 61 Year
  Sex: Female

DRUGS (3)
  1. VANCOMYCIN [Suspect]
     Indication: INTERVERTEBRAL DISCITIS
     Dosage: 1 GM Q12H IV
     Route: 042
     Dates: start: 20070404, end: 20070418
  2. VANCOMYCIN [Suspect]
     Indication: SPONDYLITIS
     Dosage: 1 GM Q12H IV
     Route: 042
     Dates: start: 20070404, end: 20070418
  3. CIPROFLOXACIN [Suspect]
     Dosage: 400MG Q12H IV
     Route: 042
     Dates: start: 20070404, end: 20070418

REACTIONS (1)
  - RASH [None]
